FAERS Safety Report 8019504-8 (Version None)
Quarter: 2012Q1

REPORT INFORMATION
  Report Type: 
  Country: None (occurrence: None)
  Receive Date: 20120103
  Receipt Date: 20111229
  Transmission Date: 20120608
  Serious: Yes (Disabling)
  Sender: FDA-Public Use
  Company Number: PHHY2011TW111393

PATIENT
  Sex: Female
  Weight: 44 kg

DRUGS (3)
  1. TERIPARATIDE [Concomitant]
     Indication: OSTEOPOROSIS
     Dosage: 1 UG, QD
     Route: 058
     Dates: start: 20111108
  2. CHEMOTHERAPEUTICS [Concomitant]
     Dates: start: 20100108
  3. ZOLEDRONIC [Suspect]
     Dosage: 4 MG PER DAY
     Route: 042
     Dates: start: 20100118, end: 20110927

REACTIONS (6)
  - OSTEONECROSIS OF JAW [None]
  - MOUTH HAEMORRHAGE [None]
  - ORAL DISORDER [None]
  - ERYTHEMA [None]
  - PAIN IN JAW [None]
  - SWELLING [None]
